FAERS Safety Report 7792062-9 (Version None)
Quarter: 2011Q4

REPORT INFORMATION
  Report Type: 
  Country: None (occurrence: None)
  Receive Date: 20111003
  Receipt Date: 20110929
  Transmission Date: 20120403
  Serious: Yes (Hospitalization)
  Sender: FDA-Public Use
  Company Number: IT-ABBOTT-11P-083-0859834-00

PATIENT
  Age: 24 Year
  Sex: Female

DRUGS (2)
  1. DEPAKENE [Suspect]
     Indication: SUICIDE ATTEMPT
     Dosage: 15 GRAMS TOTAL
     Route: 048
     Dates: start: 20110623, end: 20110623
  2. ACETAMINOPHEN [Suspect]
     Indication: INTENTIONAL SELF-INJURY
     Dosage: 5 MG TOTAL
     Route: 048
     Dates: start: 20110623, end: 20110623

REACTIONS (2)
  - SUICIDE ATTEMPT [None]
  - INTENTIONAL OVERDOSE [None]
